FAERS Safety Report 4268555-8 (Version None)
Quarter: 2004Q1

REPORT INFORMATION
  Report Type: 
  Country: None (occurrence: None)
  Receive Date: 20040108
  Receipt Date: 20031229
  Transmission Date: 20041129
  Serious: Yes (Hospitalization)
  Sender: FDA-Public Use
  Company Number: US-JNJFOC-20031205454

PATIENT
  Age: 79 Year
  Sex: Male
  Weight: 77.1115 kg

DRUGS (12)
  1. INFLIXIMAB (INFLIXIMAB, RECOMBINANT) LYOPHILIZED POWDER [Suspect]
     Indication: RHEUMATOID ARTHRITIS
     Dosage: INTRAVENOUS
     Route: 042
     Dates: start: 20010601
  2. PREDNISONE [Concomitant]
  3. CELEBREX [Concomitant]
  4. METHOTREXATE [Concomitant]
  5. ACIPHEX [Concomitant]
  6. MYSOLINE [Concomitant]
  7. ACTONEL [Concomitant]
  8. FOLIC ACID [Concomitant]
  9. VITAMIN C (ASCORBIC ACID) [Concomitant]
  10. CALCIUM AND VITAMIN D (CALCIUM D SAUTER) [Concomitant]
  11. MULTIVITAMIN (MULTIVITAMIN) [Concomitant]
  12. MIACALCIN [Concomitant]

REACTIONS (5)
  - CATHETER RELATED COMPLICATION [None]
  - HAEMATOCRIT DECREASED [None]
  - HAEMATURIA [None]
  - HAEMOGLOBIN DECREASED [None]
  - URINE OUTPUT DECREASED [None]
